FAERS Safety Report 5087358-8 (Version None)
Quarter: 2006Q3

REPORT INFORMATION
  Report Type: 
  Country: None (occurrence: None)
  Receive Date: 20060824
  Receipt Date: 20060810
  Transmission Date: 20061208
  Serious: Yes (Hospitalization)
  Sender: FDA-Public Use
  Company Number: DE-AVENTIS-200614421EU

PATIENT
  Age: 49 Year
  Sex: Male

DRUGS (2)
  1. FUROSEMIDE [Suspect]
     Indication: HYPERTENSION
  2. ACE INHIBITOR NOS [Concomitant]
     Indication: HYPERTENSION

REACTIONS (3)
  - COLITIS ULCERATIVE [None]
  - LOWER GASTROINTESTINAL HAEMORRHAGE [None]
  - WEIGHT DECREASED [None]
